FAERS Safety Report 14829942 (Version 2)
Quarter: 2018Q3

REPORT INFORMATION
  Report Type: Spontaneous
  Country: JP (occurrence: JP)
  Receive Date: 20180430
  Receipt Date: 20180717
  Transmission Date: 20181010
  Serious: Yes (Hospitalization, Other)
  Sender: FDA-Public Use
  Company Number: JP-PFIZER INC-2018170942

PATIENT
  Age: 63 Year
  Sex: Female
  Weight: 43.5 kg

DRUGS (12)
  1. CINAL [Concomitant]
     Active Substance: ASCORBIC ACID\CALCIUM PANTOTHENATE
     Dosage: UNK
  2. LANSOPRAZOLE. [Concomitant]
     Active Substance: LANSOPRAZOLE
     Dosage: UNK
  3. ENDOXAN [Suspect]
     Active Substance: CYCLOPHOSPHAMIDE
     Indication: CHEMOTHERAPY
     Dosage: 656 MG, DAILY
     Route: 042
     Dates: start: 20180410
  4. DECADRON [Concomitant]
     Active Substance: DEXAMETHASONE
     Dosage: UNK
  5. MAGMITT [Concomitant]
     Active Substance: MAGNESIUM OXIDE
     Dosage: UNK
  6. FARMORUBICIN [Suspect]
     Active Substance: EPIRUBICIN HYDROCHLORIDE
     Indication: CHEMOTHERAPY
     Dosage: 131.2 MG, DAILY
     Route: 042
     Dates: start: 20180410
  7. EMEND [Suspect]
     Active Substance: APREPITANT
     Dosage: 80 MG, DAILY
     Route: 048
     Dates: start: 20180410, end: 20180412
  8. VALSARTAN SANDOZ [Concomitant]
     Active Substance: VALSARTAN
     Dosage: UNK
  9. EMEND [Suspect]
     Active Substance: APREPITANT
     Indication: PROPHYLAXIS OF NAUSEA AND VOMITING
     Dosage: 125 MG, DAILY
     Route: 048
     Dates: start: 20180410, end: 20180412
  10. AMLODIPINE EMEC [Concomitant]
     Active Substance: AMLODIPINE BESYLATE
     Dosage: UNK
  11. 5?FU [Suspect]
     Active Substance: FLUOROURACIL
     Indication: CHEMOTHERAPY
     Dosage: 656 MG, DAILY
     Route: 042
     Dates: start: 20180410
  12. PYDOXAL [Concomitant]
     Active Substance: PYRIDOXAL
     Dosage: UNK

REACTIONS (2)
  - Neutrophil count decreased [Unknown]
  - Cerebral infarction [Not Recovered/Not Resolved]

NARRATIVE: CASE EVENT DATE: 20180418
